FAERS Safety Report 7775870-X (Version None)
Quarter: 2011Q3

REPORT INFORMATION
  Report Type: 
  Country: None (occurrence: None)
  Receive Date: 20110923
  Receipt Date: 20110914
  Transmission Date: 20111222
  Serious: Yes (Life-Threatening, Hospitalization)
  Sender: FDA-Public Use
  Company Number: GB-GENENTECH-324565

PATIENT
  Age: 24 Year
  Sex: Female
  Weight: 52 kg

DRUGS (12)
  1. ALVESCO [Concomitant]
     Indication: PRODUCT USED FOR UNKNOWN INDICATION
  2. VITAMIN D [Concomitant]
     Indication: PRODUCT USED FOR UNKNOWN INDICATION
  3. OMEPRAZOLE [Concomitant]
     Indication: PRODUCT USED FOR UNKNOWN INDICATION
  4. SPIRIVA [Concomitant]
     Indication: PRODUCT USED FOR UNKNOWN INDICATION
  5. AMINOPHYLLIN TAB [Suspect]
     Indication: ASTHMA
     Dosage: UNK
     Route: 048
     Dates: start: 20110827
  6. SALBUTAMOL INHALER [Concomitant]
     Indication: PRODUCT USED FOR UNKNOWN INDICATION
  7. XOLAIR [Suspect]
     Indication: ASTHMA
     Dosage: 300 MG, UNKNOWN
     Route: 058
     Dates: start: 20110301, end: 20110830
  8. ORAL CONTRACEPTIVE NOS [Concomitant]
     Indication: PRODUCT USED FOR UNKNOWN INDICATION
  9. TELFAST (UNITED KINGDOM) [Concomitant]
     Indication: PRODUCT USED FOR UNKNOWN INDICATION
  10. NASONEX [Concomitant]
     Indication: PRODUCT USED FOR UNKNOWN INDICATION
  11. SERETIDE [Concomitant]
     Indication: PRODUCT USED FOR UNKNOWN INDICATION
  12. RANITIDINE [Concomitant]
     Indication: PRODUCT USED FOR UNKNOWN INDICATION

REACTIONS (2)
  - TOXICITY TO VARIOUS AGENTS [None]
  - DEPRESSION [None]
